FAERS Safety Report 7508060-6 (Version None)
Quarter: 2011Q2

REPORT INFORMATION
  Report Type: 
  Country: None (occurrence: None)
  Receive Date: 20110527
  Receipt Date: 20110512
  Transmission Date: 20111010
  Serious: Yes (Other)
  Sender: FDA-Public Use
  Company Number: US-BAYER-201020346NA

PATIENT
  Age: 33 Year
  Sex: Female
  Weight: 109.9 kg

DRUGS (11)
  1. WELLBUTRIN XL [Concomitant]
  2. RANITIDINE [Concomitant]
  3. DROSPIRENONE AND ETHINYL ESTRADIOL [Suspect]
     Indication: ORAL CONTRACEPTION
     Route: 048
     Dates: start: 20080729, end: 20090113
  4. LAMODIL [Concomitant]
  5. ANAPROX DS [Concomitant]
     Dates: start: 20080401
  6. MAGNESIUM SULFATE [Concomitant]
     Dates: start: 20080101
  7. LEVOTHYROXINE SODIUM [Concomitant]
     Indication: HYPOTHYROIDISM
     Dates: start: 19960101
  8. ASCORBIC ACID [Concomitant]
     Dates: start: 20080101
  9. YASMIN [Suspect]
     Indication: ORAL CONTRACEPTION
     Route: 048
     Dates: start: 20080520, end: 20080728
  10. MULTI-VITAMIN [Concomitant]
     Dates: start: 20080101
  11. METOPROLOL SUCCINATE [Concomitant]

REACTIONS (10)
  - CHEST PAIN [None]
  - PALPITATIONS [None]
  - ARRHYTHMIA [None]
  - VENTRICULAR EXTRASYSTOLES [None]
  - DYSPNOEA [None]
  - CHOLECYSTITIS ACUTE [None]
  - BILIARY COLIC [None]
  - CHOLECYSTITIS [None]
  - ABDOMINAL PAIN UPPER [None]
  - CHOLELITHIASIS [None]
